FAERS Safety Report 5992833-5 (Version None)
Quarter: 2008Q4

REPORT INFORMATION
  Report Type: 
  Country: None (occurrence: None)
  Receive Date: 20081212
  Receipt Date: 20081201
  Transmission Date: 20090506
  Serious: Yes (Hospitalization)
  Sender: FDA-Public Use
  Company Number: US-RB-007410-08

PATIENT
  Age: 73 Year
  Sex: Male

DRUGS (1)
  1. MUCINEX [Suspect]
     Route: 048
     Dates: start: 20081128

REACTIONS (1)
  - HEART RATE INCREASED [None]
